FAERS Safety Report 24341933 (Version 2)
Quarter: 2025Q1

REPORT INFORMATION
  Report Type: Spontaneous
  Country: DE (occurrence: DE)
  Receive Date: 20240920
  Receipt Date: 20250222
  Transmission Date: 20250408
  Serious: Yes (Hospitalization, Other)
  Sender: CELLTRION
  Company Number: DE-AMGEN-DEUNI2024058563

PATIENT

DRUGS (4)
  1. ADALIMUMAB [Suspect]
     Active Substance: ADALIMUMAB
     Indication: Rheumatoid arthritis
     Dosage: 40 MILLIGRAM, Q2WK, LAST ADMINISTRATION: SEP/2023
     Route: 065
     Dates: end: 202309
  2. METHOTREXATE SODIUM [Suspect]
     Active Substance: METHOTREXATE SODIUM
     Indication: Rheumatoid arthritis
     Dosage: 12.5 MILLIGRAM, QWK
     Route: 065
  3. KEVZARA [Concomitant]
     Active Substance: SARILUMAB
     Dosage: 200 MILLIGRAM, Q2WK
     Route: 065
     Dates: start: 20231005
  4. PREDNISOLONE [Concomitant]
     Active Substance: PREDNISOLONE

REACTIONS (1)
  - Rheumatoid arthritis [Recovered/Resolved]

NARRATIVE: CASE EVENT DATE: 20230925
